FAERS Safety Report 5441968-4 (Version None)
Quarter: 2007Q3

REPORT INFORMATION
  Report Type: 
  Country: None (occurrence: None)
  Receive Date: 20070904
  Receipt Date: 20070824
  Transmission Date: 20080115
  Serious: Yes (Hospitalization)
  Sender: FDA-Public Use
  Company Number: B0479383A

PATIENT
  Age: 74 Year
  Sex: Female
  Weight: 77 kg

DRUGS (1)
  1. AVANDAMET [Suspect]
     Route: 065
     Dates: start: 20060301, end: 20060831

REACTIONS (3)
  - FALL [None]
  - HYPOGLYCAEMIA [None]
  - OVERDOSE [None]
